FAERS Safety Report 11250031 (Version 2)
Quarter: 2015Q3

REPORT INFORMATION
  Report Type: Spontaneous
  Country: US (occurrence: US)
  Receive Date: 20150708
  Receipt Date: 20150803
  Transmission Date: 20151125
  Serious: Yes (Hospitalization)
  Sender: FDA-Public Use
  Company Number: US-ELI_LILLY_AND_COMPANY-US200802005008

PATIENT
  Sex: Female
  Weight: 111.11 kg

DRUGS (2)
  1. ZYPREXA [Suspect]
     Active Substance: OLANZAPINE
  2. SYMBYAX [Suspect]
     Active Substance: FLUOXETINE HYDROCHLORIDE\OLANZAPINE
     Dates: start: 20030317

REACTIONS (3)
  - Diabetes mellitus [Not Recovered/Not Resolved]
  - Endocrine disorder [Unknown]
  - Blood glucose abnormal [Unknown]
